FAERS Safety Report 4334646-6 (Version None)
Quarter: 2004Q2

REPORT INFORMATION
  Report Type: 
  Country: None (occurrence: None)
  Receive Date: 20040408
  Receipt Date: 20031017
  Transmission Date: 20050107
  Serious: Yes (Hospitalization)
  Sender: FDA-Public Use
  Company Number: PHBS2003JP11588

PATIENT
  Age: 58 Year
  Sex: Female

DRUGS (2)
  1. RISEDRONATE SODIUM [Concomitant]
     Dosage: 2.5 MG, UNK
     Route: 048
     Dates: start: 20030826
  2. LOCHOL [Suspect]
     Indication: HYPERLIPIDAEMIA
     Dosage: 20 MG/DAY
     Route: 048
     Dates: start: 20030826, end: 20030916

REACTIONS (13)
  - BLOOD CHLORIDE INCREASED [None]
  - BLOOD CREATININE INCREASED [None]
  - BLOOD POTASSIUM INCREASED [None]
  - BLOOD SODIUM INCREASED [None]
  - BLOOD UREA INCREASED [None]
  - BLOOD URIC ACID INCREASED [None]
  - DIALYSIS [None]
  - DYSSTASIA [None]
  - FATIGUE [None]
  - HYPERTENSION [None]
  - NAUSEA [None]
  - RENAL DISORDER [None]
  - RENAL FAILURE ACUTE [None]
